FAERS Safety Report 8308675-1 (Version None)
Quarter: 2012Q2

REPORT INFORMATION
  Report Type: 
  Country: None (occurrence: None)
  Receive Date: 20120424
  Receipt Date: 20120418
  Transmission Date: 20120825
  Serious: No
  Sender: FDA-Public Use
  Company Number: US-PFIZER INC-2012096653

PATIENT
  Sex: Male
  Weight: 122 kg

DRUGS (15)
  1. TETRACYCLINE HCL [Suspect]
     Dosage: UNK
  2. PRAVASTATIN [Concomitant]
     Dosage: 80 MG, DAILY
  3. LANOXIN [Concomitant]
     Dosage: 0.125 MG, DAILY
  4. GLIPIZIDE [Concomitant]
     Dosage: 10 MG, 2X/DAY
  5. WARFARIN SODIUM [Concomitant]
     Dosage: 10 MG, DAILY
  6. LISINOPRIL [Concomitant]
     Dosage: 5 MG, DAILY
  7. POLYETHYLENE GLYCOL [Concomitant]
     Dosage: 17 G, DAILY
  8. BUMEX [Concomitant]
     Dosage: 1 MG, 2X/DAY
  9. ROCEPHIN [Concomitant]
     Dosage: 2 G, DAILY
  10. MAGNESIUM OXIDE [Concomitant]
     Dosage: 400 MG, DAILY
  11. TYLENOL (CAPLET) [Concomitant]
     Dosage: 975 MG, 3X/DAY
  12. FISH OIL [Concomitant]
     Dosage: 1000 MG, 2X/DAY
  13. METHOCARBAMOL [Concomitant]
     Dosage: 1000 MG, 3X/DAY
  14. COREG [Concomitant]
     Dosage: 50 MG, 2X/DAY
  15. OMEPRAZOLE [Concomitant]
     Dosage: 40 MG, 2X/DAY

REACTIONS (1)
  - DRUG HYPERSENSITIVITY [None]
